FAERS Safety Report 18893355 (Version 1)
Quarter: 2021Q1

REPORT INFORMATION
  Report Type: Report from Study
  Country: CA (occurrence: CA)
  Receive Date: 20210215
  Receipt Date: 20210215
  Transmission Date: 20210420
  Serious: Yes (Hospitalization)
  Sender: FDA-Public Use
  Company Number: CA-NALPROPION PHARMACEUTICALS INC.-2020-009972

PATIENT

DRUGS (7)
  1. CONTRAVE [Suspect]
     Active Substance: BUPROPION HYDROCHLORIDE\NALTREXONE HYDROCHLORIDE
     Dosage: STRENGTH: 90/8 MG (1 DOSAGE FORMS,1 IN 12 HR)
     Route: 048
     Dates: start: 20200313, end: 20200319
  2. CONTRAVE [Suspect]
     Active Substance: BUPROPION HYDROCHLORIDE\NALTREXONE HYDROCHLORIDE
     Dosage: STRENGTH: 90/8 MG, TWO TABLETS IN AM AND ONE TABLET IN PM
     Route: 048
     Dates: start: 20200320, end: 20200326
  3. CONTRAVE [Suspect]
     Active Substance: BUPROPION HYDROCHLORIDE\NALTREXONE HYDROCHLORIDE
     Dosage: STRENGTH: 90/8 MG, 1 TABLET IN MORNING AND 1 TABLET IN EVENING
     Route: 048
     Dates: start: 20200707, end: 20200722
  4. CONTRAVE [Suspect]
     Active Substance: BUPROPION HYDROCHLORIDE\NALTREXONE HYDROCHLORIDE
     Indication: WEIGHT CONTROL
     Dosage: STRENGTH: 90/8 MG (1 DOSAGE FORMS, 1 IN 1 D)
     Route: 048
     Dates: start: 20200306, end: 20200312
  5. CONTRAVE [Suspect]
     Active Substance: BUPROPION HYDROCHLORIDE\NALTREXONE HYDROCHLORIDE
     Dosage: STRENGTH: 90/8 MG, IN MORNING (SECOND ATTEMPT)
     Route: 048
     Dates: start: 20200630, end: 20200706
  6. CONTRAVE [Suspect]
     Active Substance: BUPROPION HYDROCHLORIDE\NALTREXONE HYDROCHLORIDE
     Dosage: STRENGTH: 90/8 MG (2 DOSAGE FORMS,1 IN 12 HR)
     Route: 048
     Dates: start: 20200327, end: 20200623
  7. CONTRAVE [Suspect]
     Active Substance: BUPROPION HYDROCHLORIDE\NALTREXONE HYDROCHLORIDE
     Dosage: 90/8 MG, 2 TABLETS AM AND 2 PM (SECOND ATTEMPT)
     Route: 048
     Dates: start: 20200723, end: 20210127

REACTIONS (15)
  - Apathy [Unknown]
  - Unevaluable event [Unknown]
  - Alcohol intolerance [Unknown]
  - Metrorrhagia [Recovered/Resolved]
  - Gallbladder disorder [Recovering/Resolving]
  - Bile duct stone [Unknown]
  - Biliary obstruction [Unknown]
  - Nausea [Recovered/Resolved]
  - Wrong technique in product usage process [Unknown]
  - Weight increased [Unknown]
  - Fatigue [Not Recovered/Not Resolved]
  - Dyspnoea [Unknown]
  - Headache [Recovered/Resolved]
  - Insomnia [Not Recovered/Not Resolved]
  - Vomiting [Unknown]

NARRATIVE: CASE EVENT DATE: 2020
